FAERS Safety Report 8482378 (Version 2)
Quarter: 2012Q4

REPORT INFORMATION
  Report Type: 
  Country: US (occurrence: US)
  Receive Date: 20120329
  Receipt Date: 20120906
  Transmission Date: 20130627
  Serious: Yes (Hospitalization)
  Sender: FDA-Public Use
  Company Number: US-BAYER-2012-029715

PATIENT
  Age: 24 Year
  Sex: Female
  Weight: 82 kg

DRUGS (6)
  1. YAZ [Suspect]
     Indication: PROPHYLAXIS
     Dosage: UNK
     Dates: start: 200702, end: 20100214
  2. YAZ [Suspect]
     Indication: CONTRACEPTION
  3. ALLEGRA [Concomitant]
     Indication: MIGRAINE
  4. ADVIL [Concomitant]
     Indication: MIGRAINE
  5. VITAMIN C [Concomitant]
  6. MOTRIN [Concomitant]

REACTIONS (6)
  - Cerebrovascular accident [Recovered/Resolved]
  - Injury [None]
  - Anxiety [None]
  - Pain [None]
  - Emotional distress [None]
  - Fear [None]
